FAERS Safety Report 5660282-5 (Version None)
Quarter: 2008Q1

REPORT INFORMATION
  Report Type: 
  Country: None (occurrence: None)
  Receive Date: 20080306
  Receipt Date: 20080219
  Transmission Date: 20080703
  Serious: Yes (Hospitalization)
  Sender: FDA-Public Use
  Company Number: 2008S1000088

PATIENT
  Age: 78 Year
  Sex: Male

DRUGS (5)
  1. CUBICIN [Suspect]
     Indication: DEVICE RELATED INFECTION
     Dosage: 4 MG/MK;IV
     Route: 042
     Dates: start: 20080103, end: 20080206
  2. TICLOPIDINE HCL [Concomitant]
  3. ATENOLOL [Concomitant]
  4. SIMVASTATIN [Concomitant]
  5. VITAMINS NOS [Concomitant]

REACTIONS (1)
  - CHILLS [None]
